FAERS Safety Report 8179136-8 (Version None)
Quarter: 2012Q1

REPORT INFORMATION
  Report Type: 
  Country: None (occurrence: None)
  Receive Date: 20120302
  Receipt Date: 20120227
  Transmission Date: 20120608
  Serious: No
  Sender: FDA-Public Use
  Company Number: US-PFIZER INC-2012051780

PATIENT
  Sex: Male
  Weight: 83.9 kg

DRUGS (2)
  1. MULTI-VITAMINS [Concomitant]
     Dosage: UNK
  2. VIAGRA [Suspect]
     Indication: ERECTILE DYSFUNCTION
     Dosage: UNKNOWN DOSE AS NEEDED
     Route: 048
     Dates: start: 20120226, end: 20120226

REACTIONS (3)
  - DYSPNOEA [None]
  - HEADACHE [None]
  - DIARRHOEA [None]
